FAERS Safety Report 7041289-2 (Version None)
Quarter: 2010Q4

REPORT INFORMATION
  Report Type: 
  Country: None (occurrence: None)
  Receive Date: 20101013
  Receipt Date: 20101004
  Transmission Date: 20110411
  Serious: Yes (Other)
  Sender: FDA-Public Use
  Company Number: US-AMGEN-KDL443050

PATIENT
  Sex: Female

DRUGS (3)
  1. NPLATE [Suspect]
     Indication: IDIOPATHIC THROMBOCYTOPENIC PURPURA
     Dates: start: 20100611, end: 20100722
  2. CORTICOSTEROIDS [Concomitant]
     Dates: start: 20100518
  3. DANAZOL [Concomitant]
     Dates: start: 20100708

REACTIONS (2)
  - HEADACHE [None]
  - SPLENECTOMY [None]
